FAERS Safety Report 7779725-6 (Version None)
Quarter: 2011Q3

REPORT INFORMATION
  Report Type: 
  Country: None (occurrence: None)
  Receive Date: 20110927
  Receipt Date: 20110920
  Transmission Date: 20111222
  Serious: Yes (Hospitalization, Other)
  Sender: FDA-Public Use
  Company Number: JP-PFIZER INC-2011191255

PATIENT
  Age: 78 Year
  Sex: Male
  Weight: 48 kg

DRUGS (10)
  1. LYRICA [Suspect]
     Dosage: 75 MG, 2X/DAY
     Route: 048
     Dates: start: 20110418, end: 20110503
  2. MEROPENEM [Suspect]
     Indication: POST PROCEDURAL INFECTION
  3. VANCOMYCIN [Suspect]
     Indication: POST PROCEDURAL INFECTION
  4. VALTREX [Concomitant]
     Indication: ORAL HERPES
     Dosage: 500 MG, 3X/DAY
     Route: 048
     Dates: start: 20110418, end: 20110427
  5. DECADRON [Concomitant]
     Indication: MENINGITIS BACTERIAL
     Dosage: 6.6 MG, 3X/DAY
     Route: 042
     Dates: start: 20110412, end: 20110415
  6. HALOPERIDOL [Concomitant]
     Indication: RESTLESSNESS
     Dosage: 5 MG, 1X/DAY
     Route: 042
     Dates: start: 20110412, end: 20110412
  7. LYRICA [Suspect]
     Indication: NEURALGIA
     Dosage: 75 MG, 2X/DAY
     Route: 048
     Dates: start: 20110323, end: 20110411
  8. LIORESAL [Concomitant]
     Dosage: 5 MG, 2X/DAY
     Route: 048
     Dates: start: 20110421, end: 20110426
  9. MEROPENEM [Suspect]
     Indication: MENINGITIS BACTERIAL
     Dosage: 2 G, 3X/DAY
     Route: 041
     Dates: start: 20110412, end: 20110425
  10. VANCOMYCIN [Suspect]
     Indication: MENINGITIS BACTERIAL
     Dosage: 1 G, 2X/DAY
     Route: 041
     Dates: start: 20110412, end: 20110425

REACTIONS (2)
  - DRUG ERUPTION [None]
  - TUBULOINTERSTITIAL NEPHRITIS [None]
